FAERS Safety Report 12949319 (Version 1)
Quarter: 2016Q4

REPORT INFORMATION
  Report Type: Spontaneous
  Country: US (occurrence: US)
  Receive Date: 20161116
  Receipt Date: 20161116
  Transmission Date: 20170207
  Serious: No
  Sender: FDA-Public Use
  Company Number: US-BAYER-2016-211352

PATIENT
  Sex: Female

DRUGS (2)
  1. CLIMARA [Suspect]
     Active Substance: ESTRADIOL
     Indication: HOT FLUSH
  2. CLIMARA [Suspect]
     Active Substance: ESTRADIOL
     Indication: OSTEOPOROSIS
     Dosage: UNK
     Route: 062

REACTIONS (7)
  - Product adhesion issue [None]
  - Application site irritation [None]
  - Application site pruritus [None]
  - Product use issue [None]
  - Product quality issue [None]
  - Product physical issue [None]
  - Medical device discomfort [None]
